FAERS Safety Report 12475515 (Version 1)
Quarter: 2016Q2

REPORT INFORMATION
  Report Type: Spontaneous
  Country: GB (occurrence: GB)
  Receive Date: 20160617
  Receipt Date: 20160617
  Transmission Date: 20160815
  Serious: Yes (Other)
  Sender: FDA-Public Use
  Company Number: 2016-000639 WARNER CHILCOTT

PATIENT
  Sex: Female

DRUGS (4)
  1. CALCICHEW D3 [Concomitant]
     Active Substance: CALCIUM\CHOLECALCIFEROL
     Dates: start: 2011
  2. ACTONEL [Suspect]
     Active Substance: RISEDRONATE SODIUM
     Route: 048
     Dates: end: 201602
  3. BRINZOLAMID [Concomitant]
     Dates: start: 2014
  4. LATANOPROST. [Concomitant]
     Active Substance: LATANOPROST
     Dates: start: 1997

REACTIONS (1)
  - Eczema [Recovering/Resolving]
